FAERS Safety Report 6552912-0 (Version None)
Quarter: 2010Q1

REPORT INFORMATION
  Report Type: 
  Country: None (occurrence: None)
  Receive Date: 20100122
  Receipt Date: 20100113
  Transmission Date: 20100710
  Serious: Yes (Hospitalization)
  Sender: FDA-Public Use
  Company Number: 2010SP002895

PATIENT
  Age: 39 Year
  Sex: Male

DRUGS (5)
  1. MIRTAZAPINE [Suspect]
     Indication: DRUG USE FOR UNKNOWN INDICATION
     Dosage: 730 MG;ONCE;PO
     Route: 048
     Dates: start: 20091118, end: 20091118
  2. MEPRONIZINE (MEPRONIZINE /00789201/) [Suspect]
     Indication: DRUG USE FOR UNKNOWN INDICATION
     Dosage: 12 GM;ONCE;PO
     Route: 048
     Dates: start: 20091118, end: 20091118
  3. ZOLPIDEM [Suspect]
     Indication: DRUG USE FOR UNKNOWN INDICATION
     Dosage: 840 MG;ONCE;PO
     Route: 048
     Dates: start: 20091118, end: 20091118
  4. BROMAZEPAM (BROMAZEPAM) [Suspect]
     Indication: DRUG USE FOR UNKNOWN INDICATION
     Dosage: 540 MG;ONCE;PO
     Route: 048
     Dates: start: 20091118, end: 20091118
  5. ESCITALOPRAM [Suspect]
     Indication: DRUG USE FOR UNKNOWN INDICATION
     Dosage: 420 MG;ONCE;PO
     Route: 048
     Dates: start: 20091118, end: 20091118

REACTIONS (10)
  - CARDIOGENIC SHOCK [None]
  - CORNEAL LIGHT REFLEX TEST ABNORMAL [None]
  - ELECTROCARDIOGRAM ST SEGMENT ABNORMAL [None]
  - LACTIC ACIDOSIS [None]
  - LOSS OF CONSCIOUSNESS [None]
  - MULTIPLE DRUG OVERDOSE INTENTIONAL [None]
  - RENAL FAILURE ACUTE [None]
  - SINUS TACHYCARDIA [None]
  - SUICIDE ATTEMPT [None]
  - TROPONIN INCREASED [None]
